FAERS Safety Report 8029621-4 (Version None)
Quarter: 2012Q1

REPORT INFORMATION
  Report Type: 
  Country: None (occurrence: None)
  Receive Date: 20120109
  Receipt Date: 20120104
  Transmission Date: 20120608
  Serious: No
  Sender: FDA-Public Use
  Company Number: US-PFIZER INC-2012002942

PATIENT
  Sex: Female
  Weight: 65.76 kg

DRUGS (4)
  1. ATENOLOL [Concomitant]
     Indication: CARDIAC DISORDER
     Dosage: 25 MG, DAILY
  2. NABUMETONE [Concomitant]
     Indication: ARTHRITIS
     Dosage: 500 MG, 2X/DAY
  3. PREMARIN [Suspect]
     Dosage: UNK, EVERY OTHER DAY
     Route: 048
  4. PREMARIN [Suspect]
     Indication: HORMONE REPLACEMENT THERAPY
     Dosage: 25 MG, DAILY
     Route: 048

REACTIONS (1)
  - HEADACHE [None]
